FAERS Safety Report 20370469 (Version 1)
Quarter: 2022Q1

REPORT INFORMATION
  Report Type: Spontaneous
  Country: IT (occurrence: IT)
  Receive Date: 20220124
  Receipt Date: 20220124
  Transmission Date: 20220423
  Serious: Yes (Other)
  Sender: FDA-Public Use
  Company Number: IT-EMA-DD-20220117-singh_p11-144916

PATIENT
  Age: 3 Year
  Sex: Male

DRUGS (5)
  1. ZIDOVUDINE [Suspect]
     Active Substance: ZIDOVUDINE
     Indication: Prophylaxis against HIV infection
     Dosage: 2 MG/KG, QID, (2 MILLIGRAM/KILOGRAM, Q6H )
     Route: 065
  2. ZIDOVUDINE [Suspect]
     Active Substance: ZIDOVUDINE
     Indication: HIV infection
     Dosage: UNK (TRIPLE ANTIRETROVIRAL THERAPY)
     Route: 065
  3. LAMIVUDINE [Suspect]
     Active Substance: LAMIVUDINE
     Indication: HIV infection
     Dosage: UNK (TRIPLE ANTIRETROVIRAL THERAPY)
     Route: 065
  4. LOPINAVIR\RITONAVIR [Suspect]
     Active Substance: LOPINAVIR\RITONAVIR
     Indication: HIV infection
     Dosage: UNK (TRIPLE ANTIRETROVIRAL THERAPY)
     Route: 065
  5. NEVIRAPINE [Suspect]
     Active Substance: NEVIRAPINE
     Indication: Prophylaxis against HIV infection
     Dosage: 12 MG, QD (12 MILLIGRAM)
     Route: 065

REACTIONS (2)
  - Rebound effect [Recovered/Resolved]
  - HIV infection [Recovered/Resolved]
